FAERS Safety Report 6129042-5 (Version None)
Quarter: 2009Q1

REPORT INFORMATION
  Report Type: 
  Country: None (occurrence: None)
  Receive Date: 20090324
  Receipt Date: 20090205
  Transmission Date: 20090719
  Serious: Yes (Hospitalization)
  Sender: FDA-Public Use
  Company Number: US-JNJFOC-20090201906

PATIENT
  Sex: Female

DRUGS (3)
  1. LEVAQUIN [Suspect]
     Indication: URINARY TRACT INFECTION
     Route: 065
  2. CIPROFLOXACIN HCL [Suspect]
     Indication: URINARY TRACT INFECTION
     Route: 048
  3. ASPIRIN [Concomitant]
     Route: 065

REACTIONS (14)
  - ARTHRALGIA [None]
  - DRY SKIN [None]
  - FLUID RETENTION [None]
  - HEART RATE INCREASED [None]
  - HEART RATE IRREGULAR [None]
  - HYPERTENSION [None]
  - MIGRAINE WITH AURA [None]
  - MUSCULOSKELETAL STIFFNESS [None]
  - PAIN IN EXTREMITY [None]
  - PAIN OF SKIN [None]
  - POOR PERIPHERAL CIRCULATION [None]
  - PRURITUS [None]
  - RASH [None]
  - WEIGHT INCREASED [None]
